APPROVED DRUG PRODUCT: CALCIUM GLUCONATE IN SODIUM CHLORIDE
Active Ingredient: CALCIUM GLUCONATE
Strength: 1GM/100ML (10MG/ML)
Dosage Form/Route: SOLUTION;INTRAVENOUS
Application: N210906 | Product #003
Applicant: HQ SPECIALTY PHARMA CORP
Approved: Jun 4, 2021 | RLD: Yes | RS: Yes | Type: RX

PATENTS:
Patent 10130646 | Expires: Jul 25, 2037
Patent 10342813 | Expires: Jul 25, 2037